FAERS Safety Report 20155582 (Version 1)
Quarter: 2021Q4

REPORT INFORMATION
  Report Type: Spontaneous
  Country: US (occurrence: US)
  Receive Date: 20211207
  Receipt Date: 20211207
  Transmission Date: 20220303
  Serious: Yes (Death)
  Sender: FDA-Public Use
  Company Number: US-IGSA-BIG0016835

PATIENT
  Age: 79 Year
  Sex: Male

DRUGS (1)
  1. GAMUNEX-C [Suspect]
     Active Substance: HUMAN IMMUNOGLOBULIN G
     Indication: Autoimmune disorder
     Dosage: UNK UNK, Q.M.T.
     Dates: start: 20190218, end: 20190806

REACTIONS (1)
  - Serum sickness [Fatal]

NARRATIVE: CASE EVENT DATE: 20190101
